FAERS Safety Report 9541364 (Version 1)
Quarter: 2013Q3

REPORT INFORMATION
  Report Type: Spontaneous
  Country: US (occurrence: US)
  Receive Date: 20130923
  Receipt Date: 20130923
  Transmission Date: 20140515
  Serious: No
  Sender: FDA-Public Use
  Company Number: US-009507513-1309USA007300

PATIENT
  Age: 42 Year
  Sex: Female

DRUGS (2)
  1. DULERA [Suspect]
     Indication: COUGH
     Dosage: 2 PUFFS, BID
     Route: 055
     Dates: start: 201109
  2. ALBUTEROL [Concomitant]

REACTIONS (4)
  - Cough [Not Recovered/Not Resolved]
  - Drug dose omission [Unknown]
  - Product quality issue [Unknown]
  - Off label use [Unknown]
